FAERS Safety Report 6415418-5 (Version None)
Quarter: 2009Q4

REPORT INFORMATION
  Report Type: 
  Country: None (occurrence: None)
  Receive Date: 20091027
  Receipt Date: 20091016
  Transmission Date: 20100525
  Serious: No
  Sender: FDA-Public Use
  Company Number: US-JNJFOC-20091006393

PATIENT
  Sex: Female
  Weight: 64.41 kg

DRUGS (1)
  1. DURAGESIC-100 [Suspect]
     Indication: BONE DISORDER
     Route: 062
     Dates: start: 20091007

REACTIONS (3)
  - APPLICATION SITE IRRITATION [None]
  - INAPPROPRIATE SCHEDULE OF DRUG ADMINISTRATION [None]
  - PRODUCT QUALITY ISSUE [None]
